FAERS Safety Report 15242993 (Version 1)
Quarter: 2018Q3

REPORT INFORMATION
  Report Type: Spontaneous
  Country: US (occurrence: US)
  Receive Date: 20180806
  Receipt Date: 20180806
  Transmission Date: 20181010
  Serious: Yes (Other)
  Sender: FDA-Public Use
  Company Number: US-TEVA-2018-US-937891

PATIENT
  Sex: Female

DRUGS (1)
  1. MIRTAZAPINE. [Suspect]
     Active Substance: MIRTAZAPINE
     Dates: start: 201804

REACTIONS (7)
  - Blood pressure increased [Unknown]
  - Agitation [Unknown]
  - Malaise [Unknown]
  - Dyskinesia [Unknown]
  - Muscle twitching [Unknown]
  - Heart rate increased [Unknown]
  - Aggression [Unknown]

NARRATIVE: CASE EVENT DATE: 201804
